FAERS Safety Report 4839878-6 (Version None)
Quarter: 2005Q4

REPORT INFORMATION
  Report Type: 
  Country: None (occurrence: None)
  Receive Date: 20051129
  Receipt Date: 20050906
  Transmission Date: 20060501
  Serious: Yes (Hospitalization)
  Sender: FDA-Public Use
  Company Number: DE-ROCHE-416905

PATIENT
  Age: 81 Year
  Sex: Female

DRUGS (1)
  1. BONDRONAT [Suspect]
     Indication: OSTEOPOROSIS
     Route: 042
     Dates: start: 20050707

REACTIONS (1)
  - INAPPROPRIATE ANTIDIURETIC HORMONE SECRETION [None]
